FAERS Safety Report 6611142-4 (Version None)
Quarter: 2010Q1

REPORT INFORMATION
  Report Type: 
  Country: None (occurrence: None)
  Receive Date: 20100302
  Receipt Date: 20100302
  Transmission Date: 20100710
  Serious: Yes (Hospitalization)
  Sender: FDA-Public Use
  Company Number: None

PATIENT
  Age: 49 Year
  Sex: Male
  Weight: 91.5 kg

DRUGS (9)
  1. LITHIUM CARBONATE [Suspect]
     Indication: OSTEOARTHRITIS
     Dosage: 600MG BID PO  CHRONIC
     Route: 048
  2. DIVALPROEX SODIUM [Suspect]
     Indication: OSTEOARTHRITIS
     Dosage: 1500MG QHS PO CHRONIC
     Route: 048
  3. AMANTADINE HCL [Concomitant]
  4. BENZOTROPINE [Concomitant]
  5. FOLIC ACID [Concomitant]
  6. HCTZ-MICARDIS [Concomitant]
  7. LACTULOSE [Concomitant]
  8. RISPERDAL [Concomitant]
  9. THIAMINE [Concomitant]

REACTIONS (6)
  - CONFUSIONAL STATE [None]
  - DRUG LEVEL INCREASED [None]
  - HYPOVOLAEMIA [None]
  - RENAL FAILURE ACUTE [None]
  - THERAPEUTIC AGENT TOXICITY [None]
  - UNRESPONSIVE TO STIMULI [None]
